FAERS Safety Report 21858523 (Version 2)
Quarter: 2023Q1

REPORT INFORMATION
  Report Type: Spontaneous
  Country: US (occurrence: US)
  Receive Date: 20230113
  Receipt Date: 20230313
  Transmission Date: 20230417
  Serious: No
  Sender: FDA-Public Use
  Company Number: US-PHARMAESSENTIA CORPORATION-US-2022-PEC-000953

PATIENT

DRUGS (1)
  1. BESREMI [Suspect]
     Active Substance: ROPEGINTERFERON ALFA-2B-NJFT
     Indication: Polycythaemia vera
     Dosage: 100 MCG, Q2W (EVERY 14 DAYS)
     Route: 058
     Dates: start: 20221208

REACTIONS (12)
  - Gastric disorder [Unknown]
  - Red blood cell count increased [Not Recovered/Not Resolved]
  - Haematocrit abnormal [Not Recovered/Not Resolved]
  - Weight increased [Unknown]
  - Emotional disorder [Unknown]
  - Abdominal discomfort [Unknown]
  - Fatigue [Unknown]
  - White blood cell count decreased [Recovering/Resolving]
  - Decreased appetite [Unknown]
  - Platelet count decreased [Unknown]
  - Dizziness [Unknown]
  - Nausea [Unknown]
